FAERS Safety Report 5908551-5 (Version None)
Quarter: 2008Q4

REPORT INFORMATION
  Report Type: 
  Country: None (occurrence: None)
  Receive Date: 20081006
  Receipt Date: 20080924
  Transmission Date: 20090506
  Serious: Yes (Hospitalization)
  Sender: FDA-Public Use
  Company Number: JP-AMGEN-US256943

PATIENT
  Sex: Female
  Weight: 46 kg

DRUGS (21)
  1. ENBREL [Suspect]
     Indication: RHEUMATOID ARTHRITIS
     Route: 058
     Dates: start: 20060609
  2. BETAMETHASONE [Concomitant]
     Indication: RHEUMATOID ARTHRITIS
     Route: 065
  3. BETAMETHASONE [Concomitant]
  4. PREDNISOLONE [Concomitant]
     Indication: RHEUMATOID ARTHRITIS
     Route: 065
  5. PREDNISOLONE [Concomitant]
  6. LOXONIN [Concomitant]
     Indication: RHEUMATOID ARTHRITIS
     Route: 048
  7. PROMAC [Concomitant]
     Route: 048
  8. DOGMATYL [Concomitant]
     Route: 065
  9. MERISLON [Concomitant]
     Route: 065
  10. LANSOPRAZOLE [Concomitant]
     Route: 065
  11. MAGNESIUM OXIDE [Concomitant]
     Route: 048
  12. PROGRAF [Concomitant]
     Indication: RHEUMATOID ARTHRITIS
     Route: 048
     Dates: start: 20060807, end: 20061121
  13. TRIAZOLAM [Concomitant]
     Route: 048
  14. ZOLPIDEM TARTRATE [Concomitant]
     Route: 065
  15. LANSOPRAZOLE [Concomitant]
     Route: 065
  16. BUFFERIN [Concomitant]
     Route: 065
  17. CYANOCOBALAMIN [Concomitant]
     Route: 065
  18. FOSAMAX [Concomitant]
     Route: 065
  19. LIPITOR [Concomitant]
     Route: 065
  20. ROSUVASTATIN [Concomitant]
     Route: 065
  21. TACROLIMUS [Concomitant]
     Indication: RHEUMATOID ARTHRITIS
     Route: 048
     Dates: start: 20060807, end: 20061121

REACTIONS (1)
  - NEPHROTIC SYNDROME [None]
